FAERS Safety Report 16951911 (Version 1)
Quarter: 2019Q4

REPORT INFORMATION
  Report Type: Spontaneous
  Country: FR (occurrence: FR)
  Receive Date: 20191023
  Receipt Date: 20191023
  Transmission Date: 20200122
  Serious: Yes (Hospitalization)
  Sender: FDA-Public Use
  Company Number: FR-UCBSA-2019044576

PATIENT
  Age: 70 Year
  Sex: Male
  Weight: 90 kg

DRUGS (4)
  1. KEPPRA [Suspect]
     Active Substance: LEVETIRACETAM
     Indication: WRONG PATIENT RECEIVED PRODUCT
     Dosage: 750 MG STRENGTH
     Route: 048
     Dates: start: 20190708, end: 20190708
  2. SERESTA [Suspect]
     Active Substance: OXAZEPAM
     Indication: WRONG PATIENT RECEIVED PRODUCT
     Dosage: 1 DOSAGE FORM, ONE TIME DOSE
     Route: 048
     Dates: start: 20190708, end: 20190708
  3. VIMPAT [Suspect]
     Active Substance: LACOSAMIDE
     Indication: WRONG PATIENT RECEIVED PRODUCT
     Dosage: 100 MG STRENGTH
     Route: 048
     Dates: start: 20190708, end: 20190708
  4. RIVOTRIL [Suspect]
     Active Substance: CLONAZEPAM
     Indication: WRONG PATIENT RECEIVED PRODUCT
     Dosage: 2 MG STRENGTH
     Route: 048
     Dates: start: 20190708, end: 20190708

REACTIONS (2)
  - Wrong patient received product [Unknown]
  - Somnolence [Recovered/Resolved]

NARRATIVE: CASE EVENT DATE: 20190708
